FAERS Safety Report 24118694 (Version 2)
Quarter: 2024Q3

REPORT INFORMATION
  Report Type: Report from Study
  Country: US (occurrence: US)
  Receive Date: 20240722
  Receipt Date: 20240722
  Transmission Date: 20241016
  Serious: No
  Sender: ACADIA PHARMACEUTICALS
  Company Number: US-ACADIA PHARMACEUTICALS INC.-ACA-2024-PIM-003001

PATIENT
  Sex: Male

DRUGS (9)
  1. NUPLAZID [Suspect]
     Active Substance: PIMAVANSERIN TARTRATE
     Indication: Parkinson^s disease
     Dosage: 34 MILLIGRAM, QD
     Route: 048
     Dates: start: 202305
  2. GEMTESA [Concomitant]
     Active Substance: VIBEGRON
  3. MYRBETRIQ [Concomitant]
     Active Substance: MIRABEGRON
  4. SERTRALINE HYDROCHLORIDE [Concomitant]
     Active Substance: SERTRALINE HYDROCHLORIDE
  5. AMANTADINE HYDROCHLORIDE [Concomitant]
     Active Substance: AMANTADINE HYDROCHLORIDE
  6. XALATAN [Concomitant]
     Active Substance: LATANOPROST
  7. MORNIFLUMATE [Concomitant]
     Active Substance: MORNIFLUMATE
  8. AZILECT [Concomitant]
     Active Substance: RASAGILINE MESYLATE
  9. FINASTERIDE [Concomitant]
     Active Substance: FINASTERIDE

REACTIONS (2)
  - Head injury [Unknown]
  - Fall [Unknown]
